FAERS Safety Report 19717807 (Version 2)
Quarter: 2021Q3

REPORT INFORMATION
  Report Type: Report from Study
  Country: JP (occurrence: JP)
  Receive Date: 20210819
  Receipt Date: 20210908
  Transmission Date: 20211014
  Serious: Yes (Hospitalization)
  Sender: FDA-Public Use
  Company Number: NVSJ2021JP009610

PATIENT
  Age: 59 Year
  Sex: Female
  Weight: 79 kg

DRUGS (5)
  1. CALONAL [Concomitant]
     Active Substance: ACETAMINOPHEN
     Indication: ANALGESIC THERAPY
     Dosage: 500 MG, WHEN IN PAIN
     Route: 048
  2. TRAMAL [Suspect]
     Active Substance: TRAMADOL
     Indication: ANALGESIC THERAPY
     Dosage: 100 MG, TID
     Route: 048
     Dates: end: 20210621
  3. JUZENTAIHOTO [Concomitant]
     Active Substance: HERBALS
     Indication: ENERGY INCREASED
     Dosage: 2.5 MG, TID
     Route: 048
     Dates: start: 20210617
  4. EVEROLIMUS TABLETS AF [Suspect]
     Active Substance: EVEROLIMUS
     Dosage: 5 MG
     Route: 048
     Dates: start: 20210715
  5. EVEROLIMUS TABLETS AF [Suspect]
     Active Substance: EVEROLIMUS
     Indication: CERVIX CARCINOMA
     Dosage: 10 MG
     Route: 048
     Dates: start: 20210603, end: 20210619

REACTIONS (6)
  - Pyrexia [Recovering/Resolving]
  - Vomiting [Recovering/Resolving]
  - Nausea [Recovering/Resolving]
  - Hypophagia [Unknown]
  - Decreased appetite [Unknown]
  - Stomatitis [Recovered/Resolved]

NARRATIVE: CASE EVENT DATE: 20210606
